FAERS Safety Report 11227546 (Version 1)
Quarter: 2015Q2

REPORT INFORMATION
  Report Type: Spontaneous
  Country: US (occurrence: None)
  Receive Date: 20150626
  Receipt Date: 20150626
  Transmission Date: 20150821
  Serious: Yes (Hospitalization)
  Sender: FDA-Public Use
  Company Number: US2015GSK089049

PATIENT
  Age: 62 Year
  Sex: Male

DRUGS (1)
  1. EPIVIR [Suspect]
     Active Substance: LAMIVUDINE
     Indication: HEPATITIS
     Dates: start: 20150219

REACTIONS (2)
  - Feeding disorder [None]
  - Infection [None]

NARRATIVE: CASE EVENT DATE: 201505
